FAERS Safety Report 5165121-7 (Version None)
Quarter: 2006Q4

REPORT INFORMATION
  Report Type: 
  Country: None (occurrence: None)
  Receive Date: 20061127
  Receipt Date: 20061110
  Transmission Date: 20070319
  Serious: Yes (Life-Threatening, Other)
  Sender: FDA-Public Use
  Company Number: 2006RR-04522

PATIENT
  Age: 35 Year
  Sex: Male
  Weight: 85 kg

DRUGS (2)
  1. IBUPROFEN [Suspect]
     Indication: BACK PAIN
     Dosage: 600 MG, ORAL
     Route: 048
     Dates: start: 20061020, end: 20061020
  2. ACETAMINOPHEN [Concomitant]

REACTIONS (1)
  - ASTHMA [None]
